FAERS Safety Report 23494508 (Version 3)
Quarter: 2024Q1

REPORT INFORMATION
  Report Type: Spontaneous
  Country: US (occurrence: US)
  Receive Date: 20240207
  Receipt Date: 20240319
  Transmission Date: 20240409
  Serious: Yes (Other)
  Sender: FDA-Public Use
  Company Number: US-ORGANON-O2402USA000172

PATIENT
  Age: 16 Year
  Sex: Female
  Weight: 68.481 kg

DRUGS (1)
  1. NEXPLANON [Suspect]
     Active Substance: ETONOGESTREL
     Dosage: 1 IMPLANT 68 MG IN LEFT ARM ONE EVERY THREE YEARS
     Route: 059
     Dates: start: 20240130, end: 20240130

REACTIONS (6)
  - Device expulsion [Not Recovered/Not Resolved]
  - Implant site reaction [Unknown]
  - Complication of device insertion [Recovered/Resolved]
  - Complication of device insertion [Recovered/Resolved]
  - Device malfunction [Unknown]
  - Wrong technique in product usage process [Unknown]

NARRATIVE: CASE EVENT DATE: 20240130
